FAERS Safety Report 19242358 (Version 2)
Quarter: 2021Q2

REPORT INFORMATION
  Report Type: Spontaneous
  Country: IN (occurrence: IN)
  Receive Date: 20210510
  Receipt Date: 20210616
  Transmission Date: 20210717
  Serious: Yes (Death, Other)
  Sender: FDA-Public Use
  Company Number: IN-ABBVIE-21K-078-3897703-00

PATIENT
  Age: 57 Year
  Sex: Female

DRUGS (1)
  1. IMBRUVICA [Suspect]
     Active Substance: IBRUTINIB
     Indication: PRODUCT USED FOR UNKNOWN INDICATION
     Dosage: 90 DOSE
     Route: 048
     Dates: start: 20160331

REACTIONS (4)
  - Meningitis [Unknown]
  - Infection [Unknown]
  - Brain stem infarction [Fatal]
  - Neutropenia [Unknown]
